FAERS Safety Report 12404794 (Version 2)
Quarter: 2016Q2

REPORT INFORMATION
  Report Type: Spontaneous
  Country: JP (occurrence: JP)
  Receive Date: 20160525
  Receipt Date: 20160531
  Transmission Date: 20160815
  Serious: Yes (Death, Other)
  Sender: FDA-Public Use
  Company Number: JP-009507513-1605JPN011564

PATIENT
  Age: 81 Year
  Sex: Male
  Weight: 50.3 kg

DRUGS (7)
  1. MEROPENEM. [Concomitant]
     Active Substance: MEROPENEM
     Indication: PNEUMONIA
     Dosage: 0.5 G, QD
     Route: 041
     Dates: start: 20160110, end: 20160113
  2. KENKETSU GLOVENIN-I-NICHIYAKU [Concomitant]
     Indication: PNEUMONIA
     Dosage: 2.5 G, QD
     Route: 042
     Dates: start: 20160112, end: 20160113
  3. CANCIDAS [Suspect]
     Active Substance: CASPOFUNGIN ACETATE
     Indication: PNEUMONIA
     Dosage: 50 MG, QD
     Route: 041
     Dates: start: 20160111, end: 20160113
  4. PREDONINE [Concomitant]
     Active Substance: PREDNISOLONE\PREDNISOLONE ACETATE\PREDNISOLONE SODIUM SUCCINATE
     Indication: LYMPHOMA
     Dosage: 20 MG, QD
     Route: 051
     Dates: start: 20160109, end: 20160112
  5. BACTRAMIN [Concomitant]
     Active Substance: SULFAMETHOXAZOLE\TRIMETHOPRIM
     Indication: PNEUMONIA
     Dosage: 5 ML, QD
     Route: 051
     Dates: start: 20160110, end: 20160113
  6. CANCIDAS [Suspect]
     Active Substance: CASPOFUNGIN ACETATE
     Indication: PNEUMONIA
     Dosage: 70 MG, QD
     Route: 041
     Dates: start: 20160110, end: 20160110
  7. PRIMPERAN [Concomitant]
     Active Substance: METOCLOPRAMIDE HYDROCHLORIDE
     Indication: LYMPHOMA
     Dosage: 10 MG, QD
     Route: 051
     Dates: start: 20160110, end: 20160112

REACTIONS (1)
  - Lymphoma [Fatal]

NARRATIVE: CASE EVENT DATE: 20160113
